FAERS Safety Report 17983302 (Version 1)
Quarter: 2020Q3

REPORT INFORMATION
  Report Type: Spontaneous
  Country: US (occurrence: US)
  Receive Date: 20200706
  Receipt Date: 20200706
  Transmission Date: 20201103
  Serious: No
  Sender: FDA-Public Use
  Company Number: US-JNJFOC-20200701053

PATIENT
  Age: 59 Year
  Sex: Female
  Weight: 75.82 kg

DRUGS (2)
  1. YONDELIS [Suspect]
     Active Substance: TRABECTEDIN
     Dosage: CYCLE 8
     Route: 065
     Dates: start: 20200629
  2. YONDELIS [Suspect]
     Active Substance: TRABECTEDIN
     Indication: SARCOMA
     Dosage: 8 TH CYCLE ON 29?JUN?2020
     Route: 042
     Dates: start: 20200203

REACTIONS (10)
  - Decreased appetite [Unknown]
  - Weight decreased [Unknown]
  - Duodenogastric reflux [Unknown]
  - Skin odour abnormal [Unknown]
  - Swelling [Unknown]
  - Blood alkaline phosphatase increased [Unknown]
  - Discharge [Unknown]
  - Blood creatine phosphokinase increased [Unknown]
  - Mucosal haemorrhage [Unknown]
  - Myalgia [Unknown]

NARRATIVE: CASE EVENT DATE: 2020
